FAERS Safety Report 10269925 (Version 1)
Quarter: 2014Q3

REPORT INFORMATION
  Report Type: Spontaneous
  Country: US (occurrence: US)
  Receive Date: 20140701
  Receipt Date: 20140701
  Transmission Date: 20150326
  Serious: Yes (Hospitalization, Other)
  Sender: FDA-Public Use
  Company Number: US-AMGEN-USASP2014048559

PATIENT
  Age: 58 Year
  Sex: Female

DRUGS (1)
  1. ENBREL [Suspect]
     Active Substance: ETANERCEPT
     Indication: PSORIATIC ARTHROPATHY
     Dosage: UNK MG, QWK
     Route: 065
     Dates: start: 20091201

REACTIONS (5)
  - Hip arthroplasty [Recovered/Resolved]
  - Joint dislocation [Recovered/Resolved]
  - Abasia [Recovered/Resolved]
  - Basal cell carcinoma [Recovered/Resolved]
  - Limb asymmetry [Recovered/Resolved]

NARRATIVE: CASE EVENT DATE: 2013
